FAERS Safety Report 9641617 (Version 2)
Quarter: 2014Q4

REPORT INFORMATION
  Report Type: Spontaneous
  Country: US (occurrence: US)
  Receive Date: 20131023
  Receipt Date: 20141009
  Transmission Date: 20150529
  Serious: Yes (Hospitalization, Other)
  Sender: FDA-Public Use
  Company Number: US-GLAXOSMITHKLINE-A1046505A

PATIENT
  Age: 59 Year
  Sex: Female

DRUGS (5)
  1. FLOLAN [Suspect]
     Active Substance: EPOPROSTENOL SODIUM
     Dosage: UNK
  2. FLOLAN [Suspect]
     Active Substance: EPOPROSTENOL SODIUM
     Indication: PULMONARY ARTERIAL HYPERTENSION
     Dosage: DOSE: 48 NG/KG/MINCONCENTRATION: 45,000 NG/MLVIAL STRENGTH: 1.5 MG
     Route: 042
     Dates: start: 19991116
  3. VELETRI [Suspect]
     Active Substance: EPOPROSTENOL
     Indication: PRODUCT USED FOR UNKNOWN INDICATION
     Dosage: UNK
     Dates: start: 20140926
  4. COUMADIN [Concomitant]
     Active Substance: WARFARIN SODIUM
  5. ADCIRCA [Concomitant]
     Active Substance: TADALAFIL

REACTIONS (6)
  - Rash [Unknown]
  - Thyroidectomy [Unknown]
  - Flushing [Unknown]
  - Pain in jaw [Unknown]
  - Investigation [Unknown]
  - Diarrhoea [Unknown]

NARRATIVE: CASE EVENT DATE: 20131021
